FAERS Safety Report 12573328 (Version 1)
Quarter: 2016Q3

REPORT INFORMATION
  Report Type: Spontaneous
  Country: US (occurrence: None)
  Receive Date: 20160719
  Receipt Date: 20160719
  Transmission Date: 20161109
  Serious: No
  Sender: FDA-Public Use
  Company Number: None

PATIENT
  Age: 19 Year
  Sex: Female
  Weight: 81.65 kg

DRUGS (2)
  1. PAROXETINE, 10 MG [Suspect]
     Active Substance: PAROXETINE
     Indication: DEPRESSION
     Route: 048
     Dates: start: 20160710, end: 20160718
  2. IRON SUPPLEMENTS [Concomitant]
     Active Substance: IRON

REACTIONS (3)
  - Urticaria [None]
  - Restlessness [None]
  - Confusional state [None]

NARRATIVE: CASE EVENT DATE: 20160716
